FAERS Safety Report 5408587-7 (Version None)
Quarter: 2007Q3

REPORT INFORMATION
  Report Type: 
  Country: None (occurrence: None)
  Receive Date: 20070808
  Receipt Date: 20070718
  Transmission Date: 20080115
  Serious: Yes (Other)
  Sender: FDA-Public Use
  Company Number: GB-PFIZER INC-2007063381

PATIENT
  Sex: Female

DRUGS (2)
  1. CLINDAMYCIN HYDROCHLORIDE [Suspect]
     Indication: TOOTH ABSCESS
  2. BREVINOR [Interacting]
     Route: 048

REACTIONS (4)
  - DRUG INEFFECTIVE [None]
  - DRUG INTERACTION [None]
  - NAUSEA [None]
  - UNINTENDED PREGNANCY [None]
